FAERS Safety Report 12773321 (Version 1)
Quarter: 2016Q3

REPORT INFORMATION
  Report Type: Spontaneous
  Country: US (occurrence: US)
  Receive Date: 20160922
  Receipt Date: 20160922
  Transmission Date: 20161109
  Serious: No
  Sender: FDA-Public Use
  Company Number: US-BANPHARM-20154178

PATIENT
  Sex: Female

DRUGS (8)
  1. SYNTHROID [Concomitant]
     Active Substance: LEVOTHYROXINE SODIUM
     Dosage: 0.05MG DF, QD,
  2. IRON SUPPLEMENT [Concomitant]
     Active Substance: IRON
     Dosage: 1 DF, QD,
  3. IBUPROFEN UNKNOWN PRODUCT [Concomitant]
     Active Substance: IBUPROFEN
     Dosage: 1 DF, BID,
  4. UNKNOWN MEDICATION [Concomitant]
     Active Substance: UNSPECIFIED INGREDIENT
     Indication: DEPRESSION
  5. GABITRIL [Concomitant]
     Active Substance: TIAGABINE HYDROCHLORIDE
     Dosage: 2 DF, AT NIGHT,
  6. ZYRTEC [Suspect]
     Active Substance: CETIRIZINE HYDROCHLORIDE
     Indication: MULTIPLE ALLERGIES
     Dosage: 1 DF, QD,
     Route: 048
  7. UNKNKOWN MEDICATION [Concomitant]
     Indication: DEPRESSION
     Dosage: 1 DF, QD,
  8. PROZAC [Concomitant]
     Active Substance: FLUOXETINE HYDROCHLORIDE
     Dosage: 5 DF, QD,

REACTIONS (1)
  - Urticaria [Recovered/Resolved]
